FAERS Safety Report 14098998 (Version 1)
Quarter: 2017Q4

REPORT INFORMATION
  Report Type: Spontaneous
  Country: RO (occurrence: RO)
  Receive Date: 20171017
  Receipt Date: 20171017
  Transmission Date: 20180321
  Serious: Yes (Other)
  Sender: FDA-Public Use
  Company Number: PHHY2017RO149186

PATIENT
  Age: 33 Year
  Sex: Female

DRUGS (1)
  1. VOTUBIA [Suspect]
     Active Substance: EVEROLIMUS
     Indication: ANGIOMYOLIPOMA
     Dosage: 10 MG, QD
     Route: 048

REACTIONS (6)
  - Hepatitis [Recovered/Resolved]
  - Proteinuria [Recovered/Resolved]
  - Dyslipidaemia [Not Recovered/Not Resolved]
  - Stomatitis [Recovered/Resolved]
  - Anaemia [Recovered/Resolved]
  - Gingivitis [Recovered/Resolved]
